FAERS Safety Report 20771776 (Version 1)
Quarter: 2022Q2

REPORT INFORMATION
  Report Type: Spontaneous
  Country: US (occurrence: US)
  Receive Date: 20220430
  Receipt Date: 20220430
  Transmission Date: 20220721
  Serious: Yes (Other)
  Sender: FDA-Public Use
  Company Number: US-drreddys-LIT/USA/22/0149436

PATIENT
  Sex: Male

DRUGS (6)
  1. SIROLIMUS [Suspect]
     Active Substance: SIROLIMUS
     Indication: Prophylaxis against graft versus host disease
     Dosage: ON DAY +4
  2. SIROLIMUS [Suspect]
     Active Substance: SIROLIMUS
     Indication: Prophylaxis
  3. CAMPATH [Suspect]
     Active Substance: ALEMTUZUMAB
     Indication: Prophylaxis
     Dosage: DIVIDED OVER DAYS -7 TO -3, TOTAL BODY IRRADIATION ON DAYS -2 AND -1
  4. CAMPATH [Suspect]
     Active Substance: ALEMTUZUMAB
     Indication: Infection prophylaxis
  5. CYCLOPHOSPHAMIDE [Suspect]
     Active Substance: CYCLOPHOSPHAMIDE
     Indication: Infection prophylaxis
     Dosage: POST-TRANSPLANT 0-100 MG/KG ON DAYS +3 TO +4
  6. CYCLOPHOSPHAMIDE [Suspect]
     Active Substance: CYCLOPHOSPHAMIDE
     Indication: Prophylaxis

REACTIONS (2)
  - Rhabdomyolysis [Unknown]
  - Liver injury [Unknown]
